FAERS Safety Report 5064734-0 (Version None)
Quarter: 2006Q3

REPORT INFORMATION
  Report Type: 
  Country: None (occurrence: None)
  Receive Date: 20060728
  Receipt Date: 20060718
  Transmission Date: 20061208
  Serious: Yes (Other)
  Sender: FDA-Public Use
  Company Number: NO-SANOFI-SYNTHELABO-A01200605715

PATIENT
  Age: 32 Year
  Sex: Female

DRUGS (2)
  1. DANOL [Suspect]
     Indication: DRUG USE FOR UNKNOWN INDICATION
     Dosage: 400 MG
     Route: 065
  2. DANOL [Suspect]
     Dosage: 100 MG
     Route: 065

REACTIONS (10)
  - ACNE [None]
  - AMENORRHOEA [None]
  - FOCAL NODULAR HYPERPLASIA [None]
  - HIRSUTISM [None]
  - LOW DENSITY LIPOPROTEIN INCREASED [None]
  - POLYCYSTIC OVARIES [None]
  - SKIN SWELLING [None]
  - UTERINE ATROPHY [None]
  - VIRILISM [None]
  - WEIGHT INCREASED [None]
